FAERS Safety Report 16075409 (Version 1)
Quarter: 2019Q1

REPORT INFORMATION
  Report Type: Report from Study
  Country: None (occurrence: FI)
  Receive Date: 20190315
  Receipt Date: 20190315
  Transmission Date: 20190418
  Serious: Yes (Hospitalization)
  Sender: FDA-Public Use
  Company Number: FI-ABBVIE-19S-055-2699638-00

PATIENT
  Sex: Male

DRUGS (5)
  1. TUBE FEED [Concomitant]
     Indication: PRODUCT USED FOR UNKNOWN INDICATION
     Dates: end: 2014
  2. SINEMET [Concomitant]
     Active Substance: CARBIDOPA\LEVODOPA
     Indication: PRODUCT USED FOR UNKNOWN INDICATION
  3. ATRODUAL [Concomitant]
     Indication: PRODUCT USED FOR UNKNOWN INDICATION
  4. DUODOPA [Suspect]
     Active Substance: CARBIDOPA\LEVODOPA
     Indication: PARKINSON^S DISEASE
     Dosage: MD 10 ML; CD 5.6 ML; ED 2.00 ML; 16 H TREATMENT
     Route: 050
     Dates: start: 201111
  5. TUBE FEED [Concomitant]
     Dates: start: 2014

REACTIONS (13)
  - Pneumonia [Recovered/Resolved]
  - Stoma site extravasation [Not Recovered/Not Resolved]
  - Device connection issue [Unknown]
  - Bronchiectasis [Unknown]
  - Pneumonia [Recovered/Resolved]
  - Stoma site inflammation [Unknown]
  - Complication associated with device [Unknown]
  - Joint instability [Not Recovered/Not Resolved]
  - Stoma site discharge [Not Recovered/Not Resolved]
  - Stoma site extravasation [Not Recovered/Not Resolved]
  - Pulmonary embolism [Recovered/Resolved]
  - Pneumonia [Recovered/Resolved]
  - Stoma site inflammation [Recovered/Resolved]

NARRATIVE: CASE EVENT DATE: 2014
